FAERS Safety Report 14255881 (Version 2)
Quarter: 2017Q4

REPORT INFORMATION
  Report Type: Spontaneous
  Country: US (occurrence: US)
  Receive Date: 20171206
  Receipt Date: 20171206
  Transmission Date: 20180321
  Serious: Yes (Hospitalization)
  Sender: FDA-Public Use
  Company Number: US-CELGENEUS-USA-20171100911

PATIENT
  Age: 66 Year
  Sex: Female
  Weight: 57.2 kg

DRUGS (1)
  1. REVLIMID [Suspect]
     Active Substance: LENALIDOMIDE
     Indication: PLASMA CELL MYELOMA
     Dosage: 5 MILLIGRAM
     Route: 048
     Dates: start: 201707

REACTIONS (5)
  - Asthenia [Unknown]
  - Hypotension [Unknown]
  - Blood potassium decreased [Unknown]
  - Diarrhoea [Unknown]
  - Tongue neoplasm [Unknown]

NARRATIVE: CASE EVENT DATE: 2017
